FAERS Safety Report 9788747 (Version 1)
Quarter: 2013Q4

REPORT INFORMATION
  Report Type: Spontaneous
  Country: DK (occurrence: FR)
  Receive Date: 20131230
  Receipt Date: 20131230
  Transmission Date: 20140711
  Serious: Yes (Death)
  Sender: FDA-Public Use
  Company Number: FR-FRI-1000052455

PATIENT
  Age: 68 Year
  Sex: Female

DRUGS (11)
  1. ESCITALOPRAM [Suspect]
     Dosage: 1 DF
     Route: 048
  2. TRAZOLAN [Suspect]
     Indication: GLAUCOMA
     Dosage: 1 DF
     Route: 048
     Dates: start: 20131019, end: 20131110
  3. SECTRAL [Suspect]
     Dosage: 1 DF
     Route: 048
  4. IXPRIM [Concomitant]
     Dosage: 112.50/975 MG DAILY
     Route: 048
     Dates: start: 20131019, end: 20131110
  5. EBIXA [Concomitant]
     Route: 048
  6. ALPRAZOLAM [Concomitant]
     Dosage: 3 DF
     Route: 048
  7. CALCIUM/VITAMIN D3 [Concomitant]
     Dosage: 500 MG/400 IU - 12 TABLETS WEEKLY
     Route: 048
  8. AZOPT [Concomitant]
     Dosage: 10 MG/ML TWICE DAILY
  9. OGASTORO [Concomitant]
     Dosage: 1 DF
     Route: 048
     Dates: start: 20131030, end: 20131110
  10. ACIDE ALENDRONIQUE [Concomitant]
     Dosage: 10 MG
     Route: 048
  11. TRANSIPEG [Concomitant]
     Dosage: 1 DF
     Route: 048

REACTIONS (1)
  - Cardio-respiratory arrest [Fatal]
